FAERS Safety Report 8779413 (Version 2)
Quarter: 2013Q1

REPORT INFORMATION
  Report Type: Spontaneous
  Country: FR (occurrence: FR)
  Receive Date: 20120912
  Receipt Date: 20130122
  Transmission Date: 20140127
  Serious: Yes (Hospitalization)
  Sender: FDA-Public Use
  Company Number: FR-PFIZER INC-2012220755

PATIENT
  Age: 25 Year
  Sex: Male

DRUGS (2)
  1. TAZOCILLINE [Suspect]
     Indication: OSTEITIS
     Dosage: 4 G, 3X/DAY
     Route: 042
     Dates: start: 20120730, end: 20120823
  2. CIFLOX [Concomitant]
     Indication: OSTEITIS
     Dosage: 1 DF, 2X/DAY
     Route: 048
     Dates: start: 20120730

REACTIONS (4)
  - Serum sickness [Recovered/Resolved]
  - Rash [Recovered/Resolved]
  - Eosinophilia [Recovered/Resolved]
  - Pyrexia [Recovered/Resolved]
